FAERS Safety Report 17003730 (Version 2)
Quarter: 2019Q4

REPORT INFORMATION
  Report Type: Spontaneous
  Country: US (occurrence: US)
  Receive Date: 20191107
  Receipt Date: 20191126
  Transmission Date: 20200122
  Serious: No
  Sender: FDA-Public Use
  Company Number: US-APOTEX-2019AP023595

PATIENT
  Sex: Female

DRUGS (1)
  1. KETOROLAC TROMETHAMINE. [Suspect]
     Active Substance: KETOROLAC TROMETHAMINE
     Indication: EYE ALLERGY
     Dosage: 1 GTT, BID (EACH EYE)
     Route: 047

REACTIONS (2)
  - Drug delivery system issue [Unknown]
  - Extra dose administered [Unknown]
